FAERS Safety Report 6601683-8 (Version None)
Quarter: 2010Q1

REPORT INFORMATION
  Report Type: 
  Country: None (occurrence: None)
  Receive Date: 20100225
  Receipt Date: 20100218
  Transmission Date: 20100710
  Serious: Yes (Other)
  Sender: FDA-Public Use
  Company Number: PL-ROCHE-686262

PATIENT
  Sex: Female
  Weight: 65 kg

DRUGS (1)
  1. BONIVA [Suspect]
     Indication: OSTEOPOROSIS
     Dosage: DOSE: 3, UNITS NOT REPORTED.
     Route: 042
     Dates: start: 20080928

REACTIONS (1)
  - ARTHRITIS [None]
